FAERS Safety Report 7889221-3 (Version None)
Quarter: 2011Q4

REPORT INFORMATION
  Report Type: 
  Country: None (occurrence: None)
  Receive Date: 20111103
  Receipt Date: 20111026
  Transmission Date: 20120403
  Serious: Yes (Hospitalization)
  Sender: FDA-Public Use
  Company Number: US-MERCK-1107USA02803

PATIENT
  Age: 54 Year
  Sex: Female
  Weight: 68 kg

DRUGS (9)
  1. FOSAMAX [Suspect]
     Route: 048
     Dates: end: 20031003
  2. FOSAMAX [Suspect]
     Route: 048
     Dates: end: 20040101
  3. FOSAMAX PLUS D [Suspect]
     Indication: OSTEOPOROSIS
     Route: 048
     Dates: start: 20060908, end: 20080219
  4. FOSAMAX [Suspect]
     Indication: OSTEOPOROSIS
     Route: 048
     Dates: start: 19990101, end: 20100101
  5. FOSAMAX [Suspect]
     Route: 048
     Dates: end: 20031003
  6. FOSAMAX [Suspect]
     Route: 048
     Dates: end: 20040101
  7. FOSAMAX [Suspect]
     Indication: OSTEOPENIA
     Route: 048
     Dates: start: 19990101, end: 20100101
  8. FOSAMAX PLUS D [Suspect]
     Indication: OSTEOPENIA
     Route: 048
     Dates: start: 20060908, end: 20080219
  9. ALENDRONATE SODIUM [Suspect]
     Indication: OSTEOPOROSIS
     Route: 048
     Dates: start: 20080826, end: 20091221

REACTIONS (34)
  - GASTROOESOPHAGEAL REFLUX DISEASE [None]
  - VARICOSE VEIN [None]
  - SUPRAVENTRICULAR TACHYCARDIA [None]
  - BLOOD CHOLESTEROL INCREASED [None]
  - UPPER LIMB FRACTURE [None]
  - ANAEMIA POSTOPERATIVE [None]
  - OEDEMA PERIPHERAL [None]
  - UPPER RESPIRATORY TRACT INFECTION [None]
  - RECTAL POLYP [None]
  - PALPITATIONS [None]
  - DIVERTICULUM [None]
  - INGUINAL HERNIA [None]
  - ATRIAL TACHYCARDIA [None]
  - INCISIONAL DRAINAGE [None]
  - CHEST PAIN [None]
  - ABDOMINAL PAIN [None]
  - INTERVERTEBRAL DISC DEGENERATION [None]
  - CONTUSION [None]
  - HYPERLIPIDAEMIA [None]
  - GINGIVAL DISORDER [None]
  - LIGAMENT SPRAIN [None]
  - ANXIETY DISORDER [None]
  - URINARY TRACT INFECTION [None]
  - EXOSTOSIS [None]
  - OSTEOARTHRITIS [None]
  - BACK INJURY [None]
  - FEMUR FRACTURE [None]
  - FALL [None]
  - LOWER LIMB FRACTURE [None]
  - FIBULA FRACTURE [None]
  - MUSCLE STRAIN [None]
  - PAIN IN EXTREMITY [None]
  - LIPOMA [None]
  - FOOT FRACTURE [None]
